FAERS Safety Report 4918443-6 (Version None)
Quarter: 2006Q1

REPORT INFORMATION
  Report Type: 
  Country: None (occurrence: None)
  Receive Date: 20060214
  Receipt Date: 20060130
  Transmission Date: 20060701
  Serious: Yes (Hospitalization)
  Sender: FDA-Public Use
  Company Number: JP-2006-000786

PATIENT
  Age: 52 Year
  Sex: Female
  Weight: 73 kg

DRUGS (4)
  1. BETAFERON (INTERFERON BETA -1B) INJECTION, 250UG [Suspect]
     Indication: MULTIPLE SCLEROSIS
     Dosage: 8 MIU, SUBCUTANEOUS
     Route: 058
     Dates: start: 20050920, end: 20060110
  2. METHYCOBAL (MECOBALAMIN) TABLET, 500 UG [Concomitant]
  3. MEVALOTIN (PRAVASTATIN SODIUM) TABLET, 10 MG [Concomitant]
  4. SENNOSIDE A+B CALCIUM (SENNOSIDE A+B CALCIUM) TABLET [Concomitant]

REACTIONS (7)
  - ALANINE AMINOTRANSFERASE INCREASED [None]
  - ASPARTATE AMINOTRANSFERASE INCREASED [None]
  - CONDITION AGGRAVATED [None]
  - GALLBLADDER DISORDER [None]
  - HEPATIC CYST [None]
  - HEPATIC FUNCTION ABNORMAL [None]
  - JAUNDICE [None]
